FAERS Safety Report 10347586 (Version 1)
Quarter: 2014Q3

REPORT INFORMATION
  Report Type: Spontaneous
  Country: US (occurrence: US)
  Receive Date: 20140729
  Receipt Date: 20140729
  Transmission Date: 20150326
  Serious: Yes (Hospitalization)
  Sender: FDA-Public Use
  Company Number: US-ASTRAZENECA-2014SE54363

PATIENT
  Age: 16 Year
  Sex: Female

DRUGS (2)
  1. PROPOFOL. [Suspect]
     Active Substance: PROPOFOL
     Indication: SEDATION
     Dosage: 74 MCG/KG/MIN
     Route: 042
  2. VECURONIUM [Concomitant]
     Active Substance: VECURONIUM BROMIDE

REACTIONS (1)
  - Gaze palsy [Recovered/Resolved]
